FAERS Safety Report 6517696-0 (Version None)
Quarter: 2009Q4

REPORT INFORMATION
  Report Type: 
  Country: None (occurrence: None)
  Receive Date: 20091224
  Receipt Date: 20091215
  Transmission Date: 20100525
  Serious: Yes (Other)
  Sender: FDA-Public Use
  Company Number: US-ASTRAZENECA-2009SE32063

PATIENT
  Age: 62 Year
  Sex: Female

DRUGS (7)
  1. BUDESONIDE [Suspect]
     Route: 055
     Dates: start: 20080101
  2. BROVANA [Suspect]
     Dosage: 15 UG/2 ML TWO TIMES A DAY
     Route: 055
     Dates: start: 20080101, end: 20090101
  3. BROVANA [Suspect]
     Dosage: 15 UG/2 ML ONCE DAILY
     Route: 055
     Dates: start: 20090101
  4. NEXIUM [Concomitant]
  5. ASPIRIN [Concomitant]
  6. BUMETANIDE [Concomitant]
  7. CENTRUM SILVER [Concomitant]

REACTIONS (6)
  - DIZZINESS [None]
  - DRY MOUTH [None]
  - FATIGUE [None]
  - HEADACHE [None]
  - NERVOUSNESS [None]
  - TREMOR [None]
